FAERS Safety Report 26191547 (Version 1)
Quarter: 2025Q4

REPORT INFORMATION
  Report Type: Spontaneous
  Country: US (occurrence: None)
  Receive Date: 20251217
  Receipt Date: 20251217
  Transmission Date: 20260118
  Serious: Yes (Hospitalization)
  Sender: FDA-CTU
  Company Number: None

PATIENT
  Sex: Male

DRUGS (11)
  1. TEZSPIRE [Suspect]
     Active Substance: TEZEPELUMAB-EKKO
     Indication: Asthma
     Route: 058
     Dates: start: 20230718
  2. AIRSUPRA AER 90-B0MCG [Concomitant]
  3. ALBUTEROL SULFATE [Concomitant]
     Active Substance: ALBUTEROL SULFATE
  4. ATORVASTATIN TAB 10MG [Concomitant]
  5. EPINEPHRINE INJ 0.3MG [Concomitant]
  6. GLIMEPIRIDE TAB 2MG [Concomitant]
  7. JANUVIA TAB 100MG [Concomitant]
  8. METFORMIN TAB 1000MG [Concomitant]
  9. METHYLPRED TAB 4MG [Concomitant]
  10. MONTELUKAST SODIUM [Concomitant]
     Active Substance: MONTELUKAST SODIUM
  11. ONDANSETRON [Concomitant]
     Active Substance: ONDANSETRON

REACTIONS (2)
  - Diabetes mellitus [None]
  - Therapy non-responder [None]
